FAERS Safety Report 6014798-2 (Version None)
Quarter: 2008Q4

REPORT INFORMATION
  Report Type: 
  Country: None (occurrence: None)
  Receive Date: 20081219
  Receipt Date: 20081215
  Transmission Date: 20090506
  Serious: Yes (Death, Other)
  Sender: FDA-Public Use
  Company Number: PHBS2008US06670

PATIENT
  Age: 3 Week
  Sex: Male

DRUGS (4)
  1. CYCLOSPORINE [Suspect]
     Indication: STEM CELL TRANSPLANT
     Route: 065
  2. DACLIZUMAB [Suspect]
     Indication: ACUTE GRAFT VERSUS HOST DISEASE
     Route: 065
  3. FLUDARABINE PHOSPHATE [Concomitant]
     Route: 065
  4. ALLOGENIC TRANSPLANTATION [Concomitant]

REACTIONS (12)
  - EVANS SYNDROME [None]
  - GASTROINTESTINAL OEDEMA [None]
  - GENERALISED OEDEMA [None]
  - HUMAN HERPESVIRUS 6 INFECTION [None]
  - HYPERKALAEMIA [None]
  - LEFT VENTRICULAR DYSFUNCTION [None]
  - NODULE [None]
  - PERTUSSIS [None]
  - PLEURAL EFFUSION [None]
  - PULMONARY OEDEMA [None]
  - PULMONARY VENO-OCCLUSIVE DISEASE [None]
  - RENAL FAILURE ACUTE [None]
